FAERS Safety Report 19305431 (Version 7)
Quarter: 2025Q4

REPORT INFORMATION
  Report Type: Report from Study
  Country: US (occurrence: US)
  Receive Date: 20210525
  Receipt Date: 20251218
  Transmission Date: 20260118
  Serious: Yes (Other)
  Sender: PFIZER
  Company Number: US-PFIZER INC-2021556747

PATIENT
  Age: 85 Year
  Sex: Female
  Weight: 79.9 kg

DRUGS (29)
  1. IBRANCE [Suspect]
     Active Substance: PALBOCICLIB
     Indication: Breast cancer female
     Dosage: 100 MG, 1 TABLET, CYCLIC (DAILY FOR 21 DAYS, FOLLOWED BY 7 DAYS OFF, REPEAT EVERY 28 DAYS)
     Route: 048
     Dates: start: 20201214
  2. IBRANCE [Suspect]
     Active Substance: PALBOCICLIB
     Dosage: UNK (CY 1)
     Dates: start: 20201214
  3. IBRANCE [Suspect]
     Active Substance: PALBOCICLIB
     Dosage: UNK (CY 2)
     Dates: start: 20210111
  4. IBRANCE [Suspect]
     Active Substance: PALBOCICLIB
     Dosage: UNK (CY 3)
     Dates: start: 20210201
  5. IBRANCE [Suspect]
     Active Substance: PALBOCICLIB
     Dosage: UNK (CY 4)
     Dates: start: 20210222
  6. IBRANCE [Suspect]
     Active Substance: PALBOCICLIB
     Dosage: 100 MG (DOSE-REDUCTION TO 100 MG AND DELAY D/T LOGISTICS)
     Dates: start: 20210403
  7. IBRANCE [Suspect]
     Active Substance: PALBOCICLIB
     Dosage: UNK (CY 6)
     Dates: start: 20210501
  8. IBRANCE [Suspect]
     Active Substance: PALBOCICLIB
     Dosage: UNK (CY 7)
     Dates: start: 20210529
  9. IBRANCE [Suspect]
     Active Substance: PALBOCICLIB
     Dosage: UNK (CY 8)
     Dates: start: 20210626
  10. IBRANCE [Suspect]
     Active Substance: PALBOCICLIB
     Dosage: UNK (CY 9)
     Dates: start: 20210724
  11. IBRANCE [Suspect]
     Active Substance: PALBOCICLIB
     Dosage: UNK (CY 10)
     Dates: start: 20210821
  12. IBRANCE [Suspect]
     Active Substance: PALBOCICLIB
     Dosage: UNK (CY 11)
     Dates: start: 20210918
  13. IBRANCE [Suspect]
     Active Substance: PALBOCICLIB
     Dosage: UNK (CY 12)
     Dates: start: 20211016
  14. IBRANCE [Suspect]
     Active Substance: PALBOCICLIB
     Dosage: UNK (CY 13)
     Dates: start: 20211113
  15. IBRANCE [Suspect]
     Active Substance: PALBOCICLIB
     Dosage: UNK (CY 14)
     Dates: start: 20211211
  16. IBRANCE [Suspect]
     Active Substance: PALBOCICLIB
     Dosage: UNK (CY 15)
     Dates: start: 20220108
  17. IBRANCE [Suspect]
     Active Substance: PALBOCICLIB
     Dosage: 125 MG DAILY 3 WEEKS ON 1 WEEK OFF
  18. IBRANCE [Suspect]
     Active Substance: PALBOCICLIB
     Dosage: 1 TABLET DAILY FOR 21 DAYS, FOLLOWED BY 7 DAYS OFF. REPEAT EVERY 28 DAYS
     Route: 048
  19. ANASTROZOLE [Concomitant]
     Active Substance: ANASTROZOLE
     Dosage: UNK
  20. FELODIPINE [Concomitant]
     Active Substance: FELODIPINE
     Dosage: UNK
  21. GABAPENTIN [Concomitant]
     Active Substance: GABAPENTIN
     Dosage: UNK
  22. METOPROLOL SUCCINATE [Concomitant]
     Active Substance: METOPROLOL SUCCINATE
     Dosage: UNK
  23. SIMVASTATIN [Concomitant]
     Active Substance: SIMVASTATIN
     Dosage: UNK
  24. SYNTHROID [Concomitant]
     Active Substance: LEVOTHYROXINE SODIUM
     Dosage: UNK
  25. VITAMIN D3 [Concomitant]
     Active Substance: CHOLECALCIFEROL
     Dosage: UNK
  26. XANAX [Concomitant]
     Active Substance: ALPRAZOLAM
     Dosage: UNK
  27. ELIQUIS [Concomitant]
     Active Substance: APIXABAN
     Indication: Atrial fibrillation
     Dosage: 5 MG ORAL TABLET 2 TABS, ORAL, BID (TWICE A DAY), FOR 7 DAYS THEN DECREASE TO 1 TABLET TWICE DAILY
     Route: 048
  28. ELIQUIS [Concomitant]
     Active Substance: APIXABAN
     Indication: Deep vein thrombosis
     Dosage: 5 MG ORAL TABLET 2 TABS, ORAL, BID (TWICE A DAY), FOR 7 DAYS THEN DECREASE TO 1 TABLET TWICE DAILY
     Route: 048
  29. ELIQUIS [Concomitant]
     Active Substance: APIXABAN
     Indication: Pulmonary embolism

REACTIONS (10)
  - Neuropathy peripheral [Unknown]
  - Malignant pleural effusion [Unknown]
  - Alopecia [Unknown]
  - Swelling face [Unknown]
  - Peripheral swelling [Not Recovered/Not Resolved]
  - Muscle spasms [Unknown]
  - Increased appetite [Unknown]
  - Weight increased [Unknown]
  - Off label use [Unknown]
  - Product use issue [Unknown]
